FAERS Safety Report 6769047-4 (Version None)
Quarter: 2010Q2

REPORT INFORMATION
  Report Type: 
  Country: None (occurrence: None)
  Receive Date: 20100615
  Receipt Date: 20100603
  Transmission Date: 20101027
  Serious: No
  Sender: FDA-Public Use
  Company Number: US-BIOGENIDEC-2010BI018348

PATIENT
  Sex: Female

DRUGS (1)
  1. AVONEX [Suspect]
     Indication: MULTIPLE SCLEROSIS
     Route: 030
     Dates: start: 20090905

REACTIONS (5)
  - ABDOMINAL DISCOMFORT [None]
  - ANXIETY [None]
  - DIZZINESS [None]
  - INFLUENZA LIKE ILLNESS [None]
  - LIVER DISORDER [None]
